FAERS Safety Report 9175461 (Version 1)
Quarter: 2013Q1

REPORT INFORMATION
  Report Type: Report from Study
  Country: AU (occurrence: AU)
  Receive Date: 20130320
  Receipt Date: 20130320
  Transmission Date: 20140127
  Serious: Yes (Other)
  Sender: FDA-Public Use
  Company Number: AU-ROCHE-1204035

PATIENT
  Age: 69 Year
  Sex: Female

DRUGS (10)
  1. ACTEMRA [Suspect]
     Indication: RHEUMATOID ARTHRITIS
     Dosage: FREQUENCY 4/52
     Route: 042
     Dates: start: 20101007
  2. TRITACE [Concomitant]
     Indication: HYPERTENSION
     Route: 048
  3. PREDNISOLONE [Concomitant]
     Indication: RHEUMATOID ARTHRITIS
     Route: 048
  4. ZANIDIP [Concomitant]
     Route: 048
  5. ZOCOR [Concomitant]
     Indication: BLOOD CHOLESTEROL
     Route: 065
  6. NOTEN [Concomitant]
     Indication: HYPERTENSION
     Route: 065
  7. ASPIRIN [Concomitant]
     Indication: HYPERTENSION
     Route: 065
  8. MOBIC [Concomitant]
     Indication: RHEUMATOID ARTHRITIS
     Route: 065
  9. SOMAC (AUSTRALIA) [Concomitant]
     Route: 065
  10. PANADOL OSTEO [Concomitant]
     Indication: PAIN
     Route: 065

REACTIONS (1)
  - Wrist fracture [Recovering/Resolving]
